FAERS Safety Report 10713411 (Version 2)
Quarter: 2015Q2

REPORT INFORMATION
  Report Type: Report from Study
  Country: US (occurrence: US)
  Receive Date: 20150115
  Receipt Date: 20150605
  Transmission Date: 20150821
  Serious: Yes (Other)
  Sender: FDA-Public Use
  Company Number: US-SA-2014SA163805

PATIENT
  Age: 49 Year
  Sex: Female

DRUGS (1)
  1. AUBAGIO [Suspect]
     Active Substance: TERIFLUNOMIDE
     Indication: MULTIPLE SCLEROSIS
     Route: 048
     Dates: start: 20141022

REACTIONS (6)
  - Diarrhoea [Not Recovered/Not Resolved]
  - Erythema [Recovered/Resolved]
  - Hangnail [Unknown]
  - Hypersomnia [Unknown]
  - Pneumonia [Recovering/Resolving]
  - Nasopharyngitis [Recovering/Resolving]
